FAERS Safety Report 5259815-2 (Version None)
Quarter: 2007Q1

REPORT INFORMATION
  Report Type: 
  Country: None (occurrence: None)
  Receive Date: 20070309
  Receipt Date: 20070228
  Transmission Date: 20070707
  Serious: Yes (Other)
  Sender: FDA-Public Use
  Company Number: 2006UW04560

PATIENT
  Sex: Male
  Weight: 85 kg

DRUGS (8)
  1. SEROQUEL [Suspect]
     Route: 048
  2. ZYPREXA [Suspect]
     Indication: BIPOLAR DISORDER
  3. ZYPREXA [Suspect]
     Indication: SLEEP DISORDER
  4. ZYPREXA [Suspect]
     Indication: ANXIETY
  5. RISPERDAL [Suspect]
     Indication: BIPOLAR DISORDER
     Dates: start: 20000701, end: 20000801
  6. RISPERDAL [Suspect]
     Indication: MANIA
     Dates: start: 20000701, end: 20000801
  7. CLOZARIL [Concomitant]
  8. LITHIUM CARBONATE [Concomitant]

REACTIONS (3)
  - CEREBROVASCULAR ACCIDENT [None]
  - DIABETES MELLITUS [None]
  - MYOCARDIAL INFARCTION [None]
